FAERS Safety Report 8159967-0 (Version None)
Quarter: 2012Q1

REPORT INFORMATION
  Report Type: 
  Country: None (occurrence: None)
  Receive Date: 20120223
  Receipt Date: 20120216
  Transmission Date: 20120608
  Serious: Yes (Hospitalization)
  Sender: FDA-Public Use
  Company Number: US-GLAXOSMITHKLINE-A0849343A

PATIENT
  Age: 56 Year
  Sex: Male
  Weight: 159.1 kg

DRUGS (6)
  1. GLUCOPHAGE [Concomitant]
  2. LIPITOR [Concomitant]
  3. GLUCOTROL [Concomitant]
  4. ZYLOPRIM [Concomitant]
  5. AVANDIA [Suspect]
     Indication: DIABETES MELLITUS
     Dosage: 4MG TWICE PER DAY
     Route: 048
     Dates: start: 20000214, end: 20010101
  6. ZESTRIL [Concomitant]

REACTIONS (2)
  - CARDIAC FAILURE CONGESTIVE [None]
  - OXYGEN SUPPLEMENTATION [None]
